FAERS Safety Report 13560218 (Version 1)
Quarter: 2017Q2

REPORT INFORMATION
  Report Type: Spontaneous
  Country: US (occurrence: US)
  Receive Date: 20170518
  Receipt Date: 20170518
  Transmission Date: 20170830
  Serious: No
  Sender: FDA-Public Use
  Company Number: US-PFIZER INC-2017214842

PATIENT

DRUGS (1)
  1. ADVIL [Suspect]
     Active Substance: IBUPROFEN
     Dosage: 1400 MG, (3 LIQUIGELS 200 MG, AT 2 O^CLOCK, THEN HE TAKE 2 AND THEN LIKE 6 O^CLOCK HE TOOK 2 MORE)

REACTIONS (7)
  - Chills [Unknown]
  - Nausea [Unknown]
  - Dizziness [Unknown]
  - Swelling [Unknown]
  - Intentional product misuse [Unknown]
  - Syncope [Unknown]
  - Headache [Unknown]
